FAERS Safety Report 14665019 (Version 3)
Quarter: 2018Q2

REPORT INFORMATION
  Report Type: Report from Study
  Country: MX (occurrence: MX)
  Receive Date: 20180321
  Receipt Date: 20180401
  Transmission Date: 20180711
  Serious: Yes (Hospitalization, Other)
  Sender: FDA-Public Use
  Company Number: PHHY2018MX043436

PATIENT
  Age: 62 Year
  Sex: Male
  Weight: 120 kg

DRUGS (6)
  1. CARBAMAZEPINE. [Suspect]
     Active Substance: CARBAMAZEPINE
     Indication: RESTLESSNESS
     Dosage: 1 DF, Q12H
     Route: 048
  2. METOPROLOL. [Suspect]
     Active Substance: METOPROLOL
     Indication: PRODUCT USED FOR UNKNOWN INDICATION
     Dosage: 1 DF, Q12H
     Route: 048
  3. NIFEDIPINE. [Concomitant]
     Active Substance: NIFEDIPINE
     Indication: BLOOD PRESSURE INCREASED
     Dosage: 1 DF, QD
     Route: 048
  4. ISOSORBIDE NITRATE [Concomitant]
     Indication: CARDIAC DISORDER
     Dosage: 1 DF, Q12H
     Route: 048
  5. OMEPRAZOL [Concomitant]
     Active Substance: OMEPRAZOLE
     Indication: PRODUCT USED FOR UNKNOWN INDICATION
     Dosage: 1 DF, UNK
     Route: 048
  6. ENTRESTO [Suspect]
     Active Substance: SACUBITRIL\VALSARTAN
     Indication: BLOOD PRESSURE INCREASED
     Dosage: 2 DF (200MG, 97MG OF SACUBITRIL AND 103MG OF VALSARTAN), Q12H
     Route: 048

REACTIONS (9)
  - Blood pressure increased [Not Recovered/Not Resolved]
  - Pneumonia [Recovered/Resolved]
  - Cough [Unknown]
  - Diabetes mellitus [Unknown]
  - Dysphonia [Recovered/Resolved]
  - Fluid retention [Not Recovered/Not Resolved]
  - Hypertension [Unknown]
  - Product use in unapproved indication [Unknown]
  - Expired product administered [Recovered/Resolved]

NARRATIVE: CASE EVENT DATE: 20180309
